FAERS Safety Report 19678458 (Version 1)
Quarter: 2021Q3

REPORT INFORMATION
  Report Type: Spontaneous
  Country: US (occurrence: US)
  Receive Date: 20210810
  Receipt Date: 20210810
  Transmission Date: 20211014
  Serious: No
  Sender: FDA-Public Use
  Company Number: US-DRREDDYS-SPO/USA/21/0138628

PATIENT
  Age: 16 Year
  Sex: Male

DRUGS (2)
  1. ZENATANE [Suspect]
     Active Substance: ISOTRETINOIN
     Dosage: RMA ISSUE DATE: 03 APRIL 2020 12:15:17 PM, 05 MAY 2020 3:34:12 PM, 15 JUNE 2021 9:00:07 AM
  2. ZENATANE [Suspect]
     Active Substance: ISOTRETINOIN
     Indication: PRODUCT USED FOR UNKNOWN INDICATION
     Dosage: RMA ISSUE DATE: 03 JUNE 2020 3:49:39 PM, 02 JULY 2020 9:30:12 AM, 03 AUGUST 2020 12:17:05 PM,11 FEBR

REACTIONS (2)
  - Blood triglycerides increased [Unknown]
  - Blood cholesterol increased [Unknown]
